FAERS Safety Report 5933121-2 (Version None)
Quarter: 2008Q4

REPORT INFORMATION
  Report Type: 
  Country: None (occurrence: None)
  Receive Date: 20081023
  Receipt Date: 20060829
  Transmission Date: 20090506
  Serious: Yes (Hospitalization, Other)
  Sender: FDA-Public Use
  Company Number: 2006AL002623

PATIENT
  Age: 69 Year
  Sex: 0

DRUGS (4)
  1. FLUOXETINE [Suspect]
     Indication: DEPRESSION
     Dosage: 20 MG; X1; PO
     Route: 048
     Dates: start: 20060410, end: 20060415
  2. MOVICOL [Concomitant]
  3. SIMVASTATIN [Concomitant]
  4. XALACOM [Concomitant]

REACTIONS (3)
  - GENERAL PHYSICAL HEALTH DETERIORATION [None]
  - UNRESPONSIVE TO STIMULI [None]
  - VOMITING [None]
